FAERS Safety Report 5391833-6 (Version None)
Quarter: 2007Q3

REPORT INFORMATION
  Report Type: 
  Country: None (occurrence: None)
  Receive Date: 20070718
  Receipt Date: 20070703
  Transmission Date: 20080115
  Serious: Yes (Death)
  Sender: FDA-Public Use
  Company Number: 013031

PATIENT
  Age: 76 Year
  Sex: Female

DRUGS (4)
  1. PRIALT [Suspect]
     Indication: DRUG USE FOR UNKNOWN INDICATION
     Dosage: UG, ONCE/HOU, INTRATHECAL
     Route: 037
  2. DILAUDID [Concomitant]
  3. DROPERIDOL [Concomitant]
  4. LIORESAL [Concomitant]

REACTIONS (1)
  - DEATH [None]
